FAERS Safety Report 6793520-6 (Version None)
Quarter: 2010Q2

REPORT INFORMATION
  Report Type: 
  Country: None (occurrence: None)
  Receive Date: 20100624
  Receipt Date: 20100430
  Transmission Date: 20101027
  Serious: Yes (Other)
  Sender: FDA-Public Use
  Company Number: US-MYLANLABS-2010S1007588

PATIENT
  Age: 48 Year
  Sex: Female

DRUGS (9)
  1. CLOZAPINE [Suspect]
     Indication: SCHIZOPHRENIA
     Route: 048
     Dates: end: 20100429
  2. CLOZAPINE [Suspect]
     Route: 048
     Dates: end: 20100429
  3. CLOZAPINE [Suspect]
     Route: 048
     Dates: end: 20100429
  4. NORVASC [Concomitant]
     Indication: HYPERTENSION
     Route: 048
  5. DESYREL [Concomitant]
     Indication: DEPRESSION
     Route: 048
  6. RISPERIDONE [Concomitant]
     Indication: SCHIZOPHRENIA
     Route: 048
  7. COPEGUS [Concomitant]
     Route: 048
  8. HYDROXYCHLOROQUINE [Concomitant]
     Route: 048
  9. SULAR [Concomitant]
     Indication: HYPERTENSION
     Route: 048

REACTIONS (2)
  - GRANULOCYTOPENIA [None]
  - LEUKOPENIA [None]
